FAERS Safety Report 14966807 (Version 1)
Quarter: 2018Q2

REPORT INFORMATION
  Report Type: Spontaneous
  Country: RU (occurrence: RU)
  Receive Date: 20180604
  Receipt Date: 20180604
  Transmission Date: 20180711
  Serious: No
  Sender: FDA-Public Use
  Company Number: RU-CHEPLA-1897591

PATIENT
  Sex: Female

DRUGS (1)
  1. XENICAL [Suspect]
     Active Substance: ORLISTAT
     Indication: OVERWEIGHT
     Dosage: 120MG N.21
     Route: 048

REACTIONS (3)
  - Suspected counterfeit product [Unknown]
  - Drug ineffective [Unknown]
  - No adverse event [Unknown]
